FAERS Safety Report 5163687-4 (Version None)
Quarter: 2006Q4

REPORT INFORMATION
  Report Type: 
  Country: None (occurrence: None)
  Receive Date: 20061204
  Receipt Date: 20010220
  Transmission Date: 20070319
  Serious: Yes (Hospitalization)
  Sender: FDA-Public Use
  Company Number: FR-GLAXOSMITHKLINE-B0099708A

PATIENT
  Age: 1 Day
  Sex: Male
  Weight: 3.1 kg

DRUGS (5)
  1. EPIVIR [Suspect]
     Indication: HIV INFECTION
     Dosage: 150MG TWICE PER DAY
     Route: 048
  2. STAVUDINE [Suspect]
     Indication: ANTIVIRAL PROPHYLAXIS
     Route: 048
     Dates: start: 20000707, end: 20000803
  3. STAVUDINE [Suspect]
     Indication: HIV INFECTION
     Dosage: 40MG TWICE PER DAY
     Route: 048
  4. ZIDOVUDINE [Concomitant]
     Indication: HIV INFECTION
     Route: 042
     Dates: start: 20000707, end: 20000707
  5. IRON [Concomitant]

REACTIONS (11)
  - ANAEMIA [None]
  - ANAEMIA MACROCYTIC [None]
  - BLOOD KETONE BODY INCREASED [None]
  - BLOOD KETONE BODY PRESENT [None]
  - BLOOD PYRUVIC ACID DECREASED [None]
  - DRUG EXPOSURE DURING PREGNANCY [None]
  - HYPERTRIGLYCERIDAEMIA [None]
  - LABORATORY TEST ABNORMAL [None]
  - METABOLIC DISORDER [None]
  - NEUTROPENIA [None]
  - PLATELET COUNT INCREASED [None]
